FAERS Safety Report 11113463 (Version 1)
Quarter: 2015Q2

REPORT INFORMATION
  Report Type: Spontaneous
  Country: US (occurrence: None)
  Receive Date: 20150504
  Receipt Date: 20150504
  Transmission Date: 20150821
  Serious: Yes (Hospitalization)
  Sender: FDA-Public Use
  Company Number: 1541736

PATIENT
  Sex: Female

DRUGS (2)
  1. AVASTIN [Suspect]
     Active Substance: BEVACIZUMAB
  2. TOPOTECAN (TOPOTECAN HYDROCHLORIDE [Concomitant]

REACTIONS (1)
  - Gastrointestinal perforation [None]

NARRATIVE: CASE EVENT DATE: 20150213
